FAERS Safety Report 7328840-X (Version None)
Quarter: 2011Q1

REPORT INFORMATION
  Report Type: 
  Country: None (occurrence: None)
  Receive Date: 20110225
  Receipt Date: 20110225
  Transmission Date: 20110831
  Serious: Yes (Hospitalization)
  Sender: FDA-Public Use
  Company Number: None

PATIENT
  Sex: Female
  Weight: 6.49 kg

DRUGS (3)
  1. HYDROCORTISONE [Suspect]
     Dosage: 7.5 MG
     Dates: end: 20110217
  2. METHOTREXATE [Suspect]
     Dosage: 13773.5 MG
     Dates: end: 20110218
  3. CYTARABINE [Suspect]
     Dosage: 15 MG
     Dates: end: 20110217

REACTIONS (6)
  - ESCHERICHIA INFECTION [None]
  - DRUG LEVEL INCREASED [None]
  - HYPOCALCAEMIA [None]
  - BLOOD CULTURE POSITIVE [None]
  - INFUSION RELATED REACTION [None]
  - BLOOD CREATININE INCREASED [None]
